FAERS Safety Report 13161153 (Version 9)
Quarter: 2019Q1

REPORT INFORMATION
  Report Type: Report from Study
  Country: US (occurrence: US)
  Receive Date: 20170130
  Receipt Date: 20190227
  Transmission Date: 20190417
  Serious: Yes (Hospitalization)
  Sender: FDA-Public Use
  Company Number: US-TAKEDA-2017MPI000637

PATIENT
  Age: 65 Year
  Sex: Female

DRUGS (3)
  1. CYTOXAN [Suspect]
     Active Substance: CYCLOPHOSPHAMIDE
     Indication: PLASMA CELL MYELOMA
     Dosage: UNK
     Route: 065
  2. BORTEZOMIB. [Suspect]
     Active Substance: BORTEZOMIB
     Indication: PLASMA CELL MYELOMA
     Dosage: UNK
     Route: 058
     Dates: start: 2010
  3. DEXAMETHASONE. [Suspect]
     Active Substance: DEXAMETHASONE
     Indication: PLASMA CELL MYELOMA
     Dosage: UNK
     Route: 065

REACTIONS (15)
  - Weight bearing difficulty [Unknown]
  - Respiratory tract infection [Unknown]
  - Peripheral swelling [Unknown]
  - Fatigue [Unknown]
  - Joint swelling [Unknown]
  - Headache [Unknown]
  - Feeling abnormal [Unknown]
  - Logorrhoea [Unknown]
  - Hypotension [Unknown]
  - Dehydration [Unknown]
  - Weight increased [Unknown]
  - Musculoskeletal chest pain [Unknown]
  - Gastric disorder [Unknown]
  - Gait disturbance [Unknown]
  - Nausea [Unknown]

NARRATIVE: CASE EVENT DATE: 20190222
